FAERS Safety Report 7908662-9 (Version None)
Quarter: 2011Q4

REPORT INFORMATION
  Report Type: 
  Country: None (occurrence: None)
  Receive Date: 20111111
  Receipt Date: 20111109
  Transmission Date: 20120403
  Serious: Yes (Hospitalization)
  Sender: FDA-Public Use
  Company Number: PHHO2011KR16040

PATIENT
  Sex: Female
  Weight: 82 kg

DRUGS (1)
  1. LETROZOLE [Suspect]
     Indication: BREAST CANCER
     Dosage: 20 MG/ DAY
     Route: 048
     Dates: start: 20090916

REACTIONS (1)
  - PNEUMONIA [None]
